FAERS Safety Report 11595167 (Version 1)
Quarter: 2015Q4

REPORT INFORMATION
  Report Type: Spontaneous
  Country: US (occurrence: US)
  Receive Date: 20151006
  Receipt Date: 20151006
  Transmission Date: 20160304
  Serious: No
  Sender: FDA-Public Use
  Company Number: US-LUPIN PHARMACEUTICALS INC.-E2B_00003948

PATIENT
  Age: 59 Year
  Sex: Female
  Weight: 58.11 kg

DRUGS (11)
  1. DULOXETINE DELAYED-RELEASE 30 MG CAPSULES USP [Suspect]
     Active Substance: DULOXETINE
     Indication: ARTHRALGIA
     Dates: start: 20130103
  2. OXAPROZIN. [Concomitant]
     Active Substance: OXAPROZIN
     Indication: ANTIINFLAMMATORY THERAPY
  3. CALCIUM 600MG + VITAMIN D + MINERALS [Concomitant]
     Indication: OSTEOPENIA
  4. AMITRIPTYLINE [Concomitant]
     Active Substance: AMITRIPTYLINE
     Indication: INSOMNIA
  5. PREMARIN [Concomitant]
     Active Substance: ESTROGENS, CONJUGATED
     Dates: start: 20150417, end: 20150521
  6. METOPROLOL SUCC. ER [Concomitant]
     Indication: HEART RATE IRREGULAR
  7. ASPIRIN. [Concomitant]
     Active Substance: ASPIRIN
     Indication: PRODUCT USED FOR UNKNOWN INDICATION
  8. PREMARIN [Concomitant]
     Active Substance: ESTROGENS, CONJUGATED
     Indication: PRODUCT USED FOR UNKNOWN INDICATION
     Dates: end: 20150417
  9. SYNTHROID [Concomitant]
     Active Substance: LEVOTHYROXINE SODIUM
     Indication: THYROID DISORDER
  10. SIMVASTATIN. [Concomitant]
     Active Substance: SIMVASTATIN
     Indication: BLOOD CHOLESTEROL INCREASED
  11. DULOXETINE DELAYED-RELEASE 30 MG CAPSULES USP [Suspect]
     Active Substance: DULOXETINE
     Dates: start: 20150713

REACTIONS (5)
  - Hormone level abnormal [Not Recovered/Not Resolved]
  - Vomiting in pregnancy [Unknown]
  - Night sweats [Recovered/Resolved]
  - Hot flush [Not Recovered/Not Resolved]
  - Weight increased [Not Recovered/Not Resolved]

NARRATIVE: CASE EVENT DATE: 20150706
